FAERS Safety Report 4359301-8 (Version None)
Quarter: 2004Q2

REPORT INFORMATION
  Report Type: 
  Country: None (occurrence: None)
  Receive Date: 20040512
  Receipt Date: 20040426
  Transmission Date: 20050107
  Serious: No
  Sender: FDA-Public Use
  Company Number: 2004GB01007

PATIENT
  Age: 35 Year
  Sex: Female
  Weight: 85 kg

DRUGS (1)
  1. LISINOPRIL [Suspect]
     Indication: HYPERTENSION
     Dosage: 10 MG PO
     Route: 048
     Dates: start: 19991201, end: 20040301

REACTIONS (1)
  - RETINAL VASCULITIS [None]
